FAERS Safety Report 7286380-0 (Version None)
Quarter: 2011Q1

REPORT INFORMATION
  Report Type: 
  Country: None (occurrence: None)
  Receive Date: 20110210
  Receipt Date: 20110131
  Transmission Date: 20110831
  Serious: Yes (Other)
  Sender: FDA-Public Use
  Company Number: US-ENDO PHARMACEUTICALS INC.-SPLN20110011

PATIENT
  Sex: Female

DRUGS (1)
  1. SUPPRELIN LA [Suspect]
     Route: 058
     Dates: start: 20100611

REACTIONS (5)
  - DIZZINESS [None]
  - VISION BLURRED [None]
  - IMPLANT SITE PAIN [None]
  - ABDOMINAL PAIN UPPER [None]
  - BLINDNESS TRANSIENT [None]
